FAERS Safety Report 13853377 (Version 3)
Quarter: 2019Q1

REPORT INFORMATION
  Report Type: Report from Study
  Country: US (occurrence: US)
  Receive Date: 20170809
  Receipt Date: 20190206
  Transmission Date: 20190417
  Serious: No
  Sender: FDA-Public Use
  Company Number: PHEH2017US025013

PATIENT
  Sex: Male

DRUGS (1)
  1. GILENYA [Suspect]
     Active Substance: FINGOLIMOD HYDROCHLORIDE
     Indication: MULTIPLE SCLEROSIS
     Dosage: 0.5 MG, QD
     Route: 048
     Dates: start: 20170727

REACTIONS (9)
  - Muscle rigidity [Unknown]
  - Fatigue [Unknown]
  - Paraesthesia [Unknown]
  - Peripheral swelling [Unknown]
  - Back disorder [Unknown]
  - Muscle tightness [Unknown]
  - Joint swelling [Unknown]
  - Gait disturbance [Unknown]
  - Concomitant disease aggravated [Unknown]
